FAERS Safety Report 7433605-4 (Version None)
Quarter: 2011Q2

REPORT INFORMATION
  Report Type: 
  Country: None (occurrence: None)
  Receive Date: 20110422
  Receipt Date: 20110414
  Transmission Date: 20111010
  Serious: Yes (Disabling)
  Sender: FDA-Public Use
  Company Number: DE-ALLERGAN-1105613US

PATIENT
  Age: 68 Year
  Sex: Female
  Weight: 58 kg

DRUGS (4)
  1. KLIOGEST [Concomitant]
     Indication: PRODUCT USED FOR UNKNOWN INDICATION
  2. IODIDE TABLETS [Concomitant]
     Indication: PRODUCT USED FOR UNKNOWN INDICATION
  3. TROSPIUM CHLORIDE UNK [Suspect]
     Dosage: 20 MG, QD
     Dates: start: 20100901
  4. TROSPIUM CHLORIDE UNK [Suspect]
     Indication: HYPERTONIC BLADDER
     Dosage: 10 MG, QD
     Dates: start: 20100101

REACTIONS (3)
  - VISION BLURRED [None]
  - BLINDNESS TRANSIENT [None]
  - DIARRHOEA [None]
